FAERS Safety Report 14358384 (Version 1)
Quarter: 2018Q1

REPORT INFORMATION
  Report Type: Spontaneous
  Country: US (occurrence: US)
  Receive Date: 20180105
  Receipt Date: 20180105
  Transmission Date: 20180509
  Serious: No
  Sender: FDA-Public Use
  Company Number: US-SA-2017SA208162

PATIENT
  Sex: Female

DRUGS (9)
  1. HYDROXYZINE [Concomitant]
     Active Substance: HYDROXYZINE HYDROCHLORIDE
  2. PREDNISONE. [Concomitant]
     Active Substance: PREDNISONE
  3. EUCRISA [Concomitant]
     Active Substance: CRISABOROLE
  4. VITAMINS NOS [Concomitant]
     Active Substance: VITAMINS
  5. CALCIUM [Concomitant]
     Active Substance: CALCIUM
  6. DUPIXENT [Suspect]
     Active Substance: DUPILUMAB
     Indication: DERMATITIS ATOPIC
     Route: 051
     Dates: start: 20170808
  7. TRIAMCINOLONE [Concomitant]
     Active Substance: TRIAMCINOLONE
  8. TACROLIMUS. [Concomitant]
     Active Substance: TACROLIMUS
  9. BETAMETHASONE. [Concomitant]
     Active Substance: BETAMETHASONE

REACTIONS (1)
  - Injection site pain [Unknown]
